FAERS Safety Report 24665726 (Version 1)
Quarter: 2024Q4

REPORT INFORMATION
  Report Type: Spontaneous
  Country: US (occurrence: US)
  Receive Date: 20241126
  Receipt Date: 20241126
  Transmission Date: 20250114
  Serious: No
  Sender: TEVA
  Company Number: US-TEVA-VS-3263921

PATIENT
  Age: 33 Year
  Sex: Female

DRUGS (2)
  1. LORAZEPAM [Suspect]
     Active Substance: LORAZEPAM
     Indication: Panic disorder
     Route: 048
     Dates: start: 202409, end: 2024
  2. SUBOXONE [Concomitant]
     Active Substance: BUPRENORPHINE HYDROCHLORIDE\NALOXONE HYDROCHLORIDE
     Indication: Product used for unknown indication

REACTIONS (2)
  - Drug screen negative [Unknown]
  - Anxiety [Unknown]

NARRATIVE: CASE EVENT DATE: 20240101
